FAERS Safety Report 23292992 (Version 1)
Quarter: 2023Q4

REPORT INFORMATION
  Report Type: Report from Study
  Country: IN (occurrence: IN)
  Receive Date: 20231213
  Receipt Date: 20231213
  Transmission Date: 20240110
  Serious: Yes (Other)
  Sender: FDA-Public Use
  Company Number: IN-002147023-NVSC2023IN262940

PATIENT
  Sex: Male

DRUGS (1)
  1. CERTICAN [Suspect]
     Active Substance: EVEROLIMUS
     Indication: Product used for unknown indication
     Dosage: 0.25 MG, QD
     Route: 048

REACTIONS (9)
  - Red blood cells urine positive [Unknown]
  - Body mass index increased [Unknown]
  - Red blood cell sedimentation rate abnormal [Unknown]
  - Blood sodium increased [Unknown]
  - Body surface area increased [Unknown]
  - Glomerular filtration rate abnormal [Unknown]
  - Haemoglobin decreased [Unknown]
  - Blood urea increased [Unknown]
  - Blood creatinine increased [Unknown]
